FAERS Safety Report 7531045-0 (Version None)
Quarter: 2011Q2

REPORT INFORMATION
  Report Type: 
  Country: None (occurrence: None)
  Receive Date: 20110608
  Receipt Date: 20090930
  Transmission Date: 20111010
  Serious: Yes (Other)
  Sender: FDA-Public Use
  Company Number: US-BAYER-2011-008079

PATIENT
  Age: 71 Year
  Sex: Male
  Weight: 100 kg

DRUGS (13)
  1. LIPITOR [Concomitant]
     Dosage: 20 MG, QD
     Route: 048
     Dates: start: 20030101
  2. TRASYLOL [Suspect]
     Indication: MITRAL VALVE REPAIR
  3. DOPAMINE HCL [Concomitant]
     Dosage: TITRATED
     Route: 042
     Dates: start: 20050415, end: 20050415
  4. LEVOPHED [Concomitant]
     Dosage: TITRATED
     Route: 042
     Dates: start: 20050415
  5. VANCOMYCIN [Concomitant]
     Dosage: 1 GRAM
     Route: 042
     Dates: start: 20050415
  6. LOTREL [Concomitant]
     Dosage: 10/20 MG DAILY
     Route: 048
     Dates: start: 20030101
  7. HEPARIN [Concomitant]
     Dosage: 4MG/KG
     Route: 042
     Dates: start: 20050415, end: 20050415
  8. HEPARIN [Concomitant]
     Dosage: 10,000 UNITS,BYPASS
     Dates: start: 20050415
  9. COUMADIN [Concomitant]
     Dosage: 7.5MG/1/2 TABLET/DAILY
  10. MANNITOL [Concomitant]
     Dosage: 12.5 GRAMS,BYPASS
     Dates: start: 20050415
  11. TRASYLOL [Suspect]
     Indication: AORTIC VALVE REPLACEMENT
     Dosage: 200 ML CARDIOPULMONARY BYPASS PRIME
     Route: 042
     Dates: start: 20050415, end: 20050415
  12. TRASYLOL [Suspect]
     Indication: CORONARY ARTERY BYPASS
  13. PROZAC [Concomitant]
     Dosage: 20 MG, BID

REACTIONS (14)
  - RENAL FAILURE [None]
  - UNEVALUABLE EVENT [None]
  - NERVOUSNESS [None]
  - MULTI-ORGAN FAILURE [None]
  - FEAR [None]
  - INJURY [None]
  - RENAL INJURY [None]
  - ANXIETY [None]
  - FEAR OF DEATH [None]
  - PSYCHIATRIC SYMPTOM [None]
  - PAIN [None]
  - EMOTIONAL DISTRESS [None]
  - CEREBROVASCULAR ACCIDENT [None]
  - DEPRESSION [None]
